FAERS Safety Report 7396327-4 (Version None)
Quarter: 2011Q1

REPORT INFORMATION
  Report Type: 
  Country: None (occurrence: None)
  Receive Date: 20110325
  Receipt Date: 20110312
  Transmission Date: 20110831
  Serious: Yes (Hospitalization, Other)
  Sender: FDA-Public Use
  Company Number: ACO_22293_2011

PATIENT
  Age: 70 Year
  Sex: Female
  Weight: 74.8 kg

DRUGS (19)
  1. REBIF [Concomitant]
  2. REQUIP [Concomitant]
  3. CYMBALTA [Concomitant]
  4. TYLENOL W/CODEINE (CODEINE PHOSPHATE, PARACETAMOL) [Concomitant]
  5. LOSARTAN (LOSARTAN) [Concomitant]
  6. ENTOCORT (BUDESONIDE) [Concomitant]
  7. POTASSIUM /00031402/ (POTASSIUM CHLORIDE) [Concomitant]
  8. PLAVIX [Concomitant]
  9. LEVOXYL [Concomitant]
  10. ERGOCALCIFEROL [Concomitant]
  11. CLONAZEPAM [Concomitant]
  12. AMPYRA [Suspect]
     Indication: MULTIPLE SCLEROSIS
     Dosage: 10 MG, Q 12 HRS, ORAL, 10 MG, QD, ORAL
     Route: 048
     Dates: start: 20110301, end: 20110311
  13. AMPYRA [Suspect]
     Indication: GAIT DISTURBANCE
     Dosage: 10 MG, Q 12 HRS, ORAL, 10 MG, QD, ORAL
     Route: 048
     Dates: start: 20110301, end: 20110311
  14. AMPYRA [Suspect]
     Indication: MULTIPLE SCLEROSIS
     Dosage: 10 MG, Q 12 HRS, ORAL, 10 MG, QD, ORAL
     Route: 048
     Dates: start: 20110201, end: 20110301
  15. AMPYRA [Suspect]
     Indication: GAIT DISTURBANCE
     Dosage: 10 MG, Q 12 HRS, ORAL, 10 MG, QD, ORAL
     Route: 048
     Dates: start: 20110201, end: 20110301
  16. AMPYRA [Suspect]
     Indication: MULTIPLE SCLEROSIS
     Dosage: 10 MG, Q 12 HRS, ORAL, 10 MG, QD, ORAL
     Route: 048
     Dates: start: 20110201, end: 20110201
  17. AMPYRA [Suspect]
     Indication: GAIT DISTURBANCE
     Dosage: 10 MG, Q 12 HRS, ORAL, 10 MG, QD, ORAL
     Route: 048
     Dates: start: 20110201, end: 20110201
  18. BACLOFEN [Concomitant]
  19. HYDROCHLOROTHIAZIDE [Concomitant]

REACTIONS (16)
  - FEELING HOT [None]
  - NAUSEA [None]
  - NEUROMYOPATHY [None]
  - DYSKINESIA [None]
  - AGITATION [None]
  - THERAPEUTIC RESPONSE UNEXPECTED [None]
  - DIZZINESS [None]
  - CONTUSION [None]
  - HYPERTENSION [None]
  - PARTIAL SEIZURES [None]
  - MENTAL STATUS CHANGES [None]
  - HYPERVENTILATION [None]
  - ANXIETY [None]
  - PROCTALGIA [None]
  - FATIGUE [None]
  - INAPPROPRIATE SCHEDULE OF DRUG ADMINISTRATION [None]
